FAERS Safety Report 9768183 (Version 1)
Quarter: 2013Q4

REPORT INFORMATION
  Report Type: Spontaneous
  Country: JP (occurrence: JP)
  Receive Date: 20131217
  Receipt Date: 20131217
  Transmission Date: 20140711
  Serious: Yes (Hospitalization)
  Sender: FDA-Public Use
  Company Number: JP-VIIV HEALTHCARE LIMITED-B0952760A

PATIENT
  Age: 68 Year
  Sex: Male

DRUGS (2)
  1. EPZICOM [Suspect]
     Route: 048
  2. ETRAVIRINE [Concomitant]
     Route: 048

REACTIONS (4)
  - Cerebral infarction [Unknown]
  - Embolic stroke [Unknown]
  - Cerebral infarction [Unknown]
  - Aphasia [Unknown]
